FAERS Safety Report 7720944-2 (Version None)
Quarter: 2011Q3

REPORT INFORMATION
  Report Type: 
  Country: None (occurrence: None)
  Receive Date: 20110825
  Receipt Date: 20110811
  Transmission Date: 20111222
  Serious: Yes (Hospitalization)
  Sender: FDA-Public Use
  Company Number: 15350184

PATIENT
  Age: 69 Year
  Sex: Male

DRUGS (5)
  1. WARFARIN SODIUM [Suspect]
     Indication: EMBOLISM
     Dosage: 4 MILLIGRAM 1/1 DAY ORAL
     Route: 048
     Dates: start: 20100728, end: 20101021
  2. ALOGPYRIN (METAMIZOLE SODIUM) [Suspect]
     Indication: BONE PAIN
     Dates: start: 20101018, end: 20101022
  3. PLACEBO [Suspect]
     Indication: EMBOLISM
     Dosage: ORAL
     Route: 048
     Dates: start: 20100728, end: 20101021
  4. APIXABAN [Suspect]
     Indication: EMBOLISM
     Dosage: 5 MILLIGRAM 2/1 DAY ORAL
     Route: 048
     Dates: start: 20100728, end: 20101021
  5. ENOXAPARIN SODIUM [Suspect]
     Indication: EMBOLISM
     Dosage: 1 DAY
     Dates: start: 20100728

REACTIONS (5)
  - HAEMATEMESIS [None]
  - FAECES DISCOLOURED [None]
  - BLOOD CREATININE INCREASED [None]
  - DUODENAL ULCER HAEMORRHAGE [None]
  - HAEMOGLOBIN DECREASED [None]
